FAERS Safety Report 6267626-4 (Version None)
Quarter: 2009Q3

REPORT INFORMATION
  Report Type: 
  Country: None (occurrence: None)
  Receive Date: 20090714
  Receipt Date: 20090706
  Transmission Date: 20100115
  Serious: Yes (Hospitalization)
  Sender: FDA-Public Use
  Company Number: CA-PFIZER INC-2009226020

PATIENT
  Age: 70 Year

DRUGS (4)
  1. LIPITOR [Suspect]
     Dosage: 20 MG, UNK
     Dates: end: 20090101
  2. LIPITOR [Suspect]
     Dosage: 80 MG, UNK
     Dates: start: 20090101
  3. METOPROLOL [Concomitant]
     Dosage: 75 MG, 1X/DAY
  4. PLAVIX [Concomitant]
     Dosage: 75 MG, 1X/DAY

REACTIONS (5)
  - DEPRESSED MOOD [None]
  - DUODENAL PERFORATION [None]
  - MYOCARDIAL INFARCTION [None]
  - RENAL FAILURE [None]
  - RHABDOMYOLYSIS [None]
